FAERS Safety Report 8539696 (Version 2)
Quarter: 2012Q4

REPORT INFORMATION
  Report Type: Spontaneous
  Country: US (occurrence: None)
  Receive Date: 20120424
  Receipt Date: 20120815
  Transmission Date: 20130627
  Serious: Yes (Hospitalization)
  Sender: FDA-Public Use
  Company Number: US-008218

PATIENT
  Age: 36 Year
  Sex: Female
  Weight: 152.86 kg

DRUGS (3)
  1. TRANEXAMIC ACID [Suspect]
     Indication: MENORRHAGIA
     Dosage: (1300 MG TID)
     Dates: start: 20120405, end: 20120408
  2. LOESTRIN [Suspect]
     Indication: PRODUCT USED FOR UNKNOWN INDICATION
     Route: 048
     Dates: start: 20120330, end: 20120405
  3. MICROGESTIN [Concomitant]

REACTIONS (3)
  - Deep vein thrombosis [None]
  - Swelling face [None]
  - Pulmonary embolism [None]
